FAERS Safety Report 9506157 (Version 1)
Quarter: 2013Q1

REPORT INFORMATION
  Report Type: Spontaneous
  Country: US (occurrence: None)
  Receive Date: 20130305
  Receipt Date: 20130305
  Transmission Date: 20140127
  Serious: Yes (Hospitalization)
  Sender: FDA-Public Use
  Company Number: 163-21880-110623205

PATIENT
  Age: 66 Year
  Sex: Male
  Weight: 60.33 kg

DRUGS (20)
  1. REVLIMID [Suspect]
     Indication: MYELODYSPLASTIC SYNDROME
     Dosage: 10 MG, CAPSULE, DAILY X 28 DAYS, PO
     Dates: start: 20110224
  2. XANAX (ALPRAZOLAM) [Concomitant]
  3. WELLBUTRIN (BUPROPION HYDROCHLORIDE) [Concomitant]
  4. FOLIC ACID [Concomitant]
  5. ASPIRIN (ACETYLSALICYLIC ACID) [Concomitant]
  6. PRILOSEC [Concomitant]
  7. MVI [Concomitant]
  8. TOPROL (METOPROLOL SUCCINATE) [Concomitant]
  9. SPIRIVA (TIOTROPIUM BROMIDE) [Concomitant]
  10. CRESTOR (ROSUVASTATIN) [Concomitant]
  11. ALBUTEROL (SALBUTAMOL) [Concomitant]
  12. BUPROPION HCL [Concomitant]
  13. EMLA [Concomitant]
  14. IMODIUM A-D (LOPERAMIDE HYDROCHLORIDE) [Concomitant]
  15. ISOSORBIDE MONONITRATE [Concomitant]
  16. MEGACE ES (MEGESTROL ACETATE) [Concomitant]
  17. NITROGLYCERIN (GLYCERYL TRINITRATE) [Concomitant]
  18. OMEPRAZOLE [Concomitant]
  19. PROAIR HFA (SALBUTAMOL SULFATE) [Concomitant]
  20. TIOTROPIUM BROMIDE [Concomitant]

REACTIONS (2)
  - White blood cell count decreased [None]
  - Red blood cell count decreased [None]
